FAERS Safety Report 5427882-9 (Version None)
Quarter: 2007Q3

REPORT INFORMATION
  Report Type: 
  Country: None (occurrence: None)
  Receive Date: 20070828
  Receipt Date: 20070821
  Transmission Date: 20080115
  Serious: Yes (Hospitalization)
  Sender: FDA-Public Use
  Company Number: FRWYE206022AUG07

PATIENT
  Age: 16 Year
  Sex: Female

DRUGS (2)
  1. RHINADVIL [Suspect]
     Indication: CHRONIC TONSILLITIS
     Dosage: UNKNOWN
     Route: 048
     Dates: start: 20070331, end: 20070402
  2. RHINOFLUIMUCIL [Suspect]
     Indication: CHRONIC TONSILLITIS
     Dosage: UNKNOWN
     Route: 048
     Dates: start: 20070331, end: 20070402

REACTIONS (8)
  - ABDOMINAL PAIN [None]
  - COMPLEMENT FACTOR C3 DECREASED [None]
  - FLUID RETENTION [None]
  - HYPERSENSITIVITY [None]
  - HYPERURICAEMIA [None]
  - NEPHROPATHY [None]
  - RENAL FAILURE ACUTE [None]
  - TONSILLITIS STREPTOCOCCAL [None]
